FAERS Safety Report 9340542 (Version 1)
Quarter: 2013Q2

REPORT INFORMATION
  Report Type: Spontaneous
  Country: US (occurrence: US)
  Receive Date: 20130610
  Receipt Date: 20130610
  Transmission Date: 20140414
  Serious: Yes (Other)
  Sender: FDA-Public Use
  Company Number: US-BAYER-2013-066262

PATIENT
  Age: 5 Day
  Sex: Female
  Weight: 4.8 kg

DRUGS (1)
  1. CALCIUM CARBONATE [Suspect]
     Route: 064

REACTIONS (2)
  - Hypocalcaemic seizure [Recovered/Resolved]
  - Foetal exposure during pregnancy [None]
